FAERS Safety Report 5029186-5 (Version None)
Quarter: 2006Q2

REPORT INFORMATION
  Report Type: 
  Country: None (occurrence: None)
  Receive Date: 20060615
  Receipt Date: 20060615
  Transmission Date: 20061013
  Serious: Yes (Other)
  Sender: FDA-Public Use
  Company Number: None

PATIENT
  Age: 38 Year
  Sex: Female
  Weight: 66.6788 kg

DRUGS (3)
  1. CIPROFLOXACIN HCL [Suspect]
     Indication: URINARY TRACT INFECTION
     Dosage: 1 TWICE A DAY PO
     Route: 048
     Dates: start: 20051121, end: 20051123
  2. CIPROFLOXACIN HCL [Suspect]
     Indication: DISEASE RECURRENCE
     Dosage: 1 TWICE A DAY PO
     Route: 048
     Dates: start: 20060307, end: 20060310
  3. CIPROFLOXACIN HCL [Suspect]
     Indication: URINARY TRACT INFECTION
     Dosage: 1 TWICE A DAY PO
     Route: 048
     Dates: start: 20060307, end: 20060310

REACTIONS (17)
  - AGITATION [None]
  - ASTHENIA [None]
  - BALANCE DISORDER [None]
  - CHEST PAIN [None]
  - DIZZINESS [None]
  - DRUG EFFECT INCREASED [None]
  - FATIGUE [None]
  - IMPAIRED WORK ABILITY [None]
  - INSOMNIA [None]
  - MALAISE [None]
  - MOOD ALTERED [None]
  - MUSCLE STRAIN [None]
  - PALPITATIONS [None]
  - PHOTOPHOBIA [None]
  - PREMENSTRUAL SYNDROME [None]
  - THERAPY NON-RESPONDER [None]
  - VISUAL DISTURBANCE [None]
